FAERS Safety Report 8570396-8 (Version None)
Quarter: 2012Q3

REPORT INFORMATION
  Report Type: 
  Country: None (occurrence: None)
  Receive Date: 20120803
  Receipt Date: 20120727
  Transmission Date: 20120928
  Serious: Yes (Other)
  Sender: FDA-Public Use
  Company Number: US-ASTRAZENECA-2012SE53811

PATIENT
  Age: 40 Year
  Sex: Male

DRUGS (8)
  1. LOVAZA [Concomitant]
  2. ZESTRIL [Suspect]
     Route: 048
  3. LANTUS [Concomitant]
     Dosage: 60 UNITS EVERY NIGHT
  4. COREG [Concomitant]
  5. CRESTOR [Suspect]
     Route: 048
  6. ASPIRIN [Concomitant]
  7. HUMALOG [Concomitant]
  8. M.V.I. [Concomitant]
     Dosage: DAILY

REACTIONS (12)
  - LEFT VENTRICULAR DYSFUNCTION [None]
  - HYPERCHOLESTEROLAEMIA [None]
  - CORONARY ARTERY STENOSIS [None]
  - CORONARY ARTERY OCCLUSION [None]
  - PSORIASIS [None]
  - SLEEP APNOEA SYNDROME [None]
  - CORONARY ARTERY DISEASE [None]
  - OBESITY [None]
  - HYPERTENSION [None]
  - HYPOTHYROIDISM [None]
  - DIABETES MELLITUS [None]
  - ELECTROCARDIOGRAM T WAVE ABNORMAL [None]
